FAERS Safety Report 4638561-X (Version None)
Quarter: 2005Q2

REPORT INFORMATION
  Report Type: 
  Country: None (occurrence: None)
  Receive Date: 20050419
  Receipt Date: 20050408
  Transmission Date: 20051028
  Serious: Yes (Other)
  Sender: FDA-Public Use
  Company Number: US-JNJFOC-20050402605

PATIENT
  Sex: Female
  Weight: 68.95 kg

DRUGS (7)
  1. REMICADE [Suspect]
     Indication: RHEUMATOID ARTHRITIS
     Route: 042
  2. METHOTREXATE [Concomitant]
  3. PREMARIN [Concomitant]
  4. PROVERA [Concomitant]
  5. ALTACE [Concomitant]
     Indication: BLOOD PRESSURE
  6. ZIAC [Concomitant]
  7. ZIAC [Concomitant]
     Indication: BLOOD PRESSURE
     Dosage: 5-6 MG

REACTIONS (1)
  - DIVERTICULAR PERFORATION [None]
